FAERS Safety Report 22952782 (Version 2)
Quarter: 2024Q3

REPORT INFORMATION
  Report Type: Spontaneous
  Country: US (occurrence: US)
  Receive Date: 20230918
  Receipt Date: 20240902
  Transmission Date: 20241017
  Serious: No
  Sender: NOVARTIS
  Company Number: US-SANDOZ-SDZ2023US028198

PATIENT
  Sex: Male

DRUGS (2)
  1. ENALAPRIL [Suspect]
     Active Substance: ENALAPRIL
     Indication: Product used for unknown indication
     Dosage: UNK
     Route: 065
  2. ENTRESTO [Suspect]
     Active Substance: SACUBITRIL\VALSARTAN
     Indication: Product used for unknown indication
     Dosage: UNK
     Route: 065

REACTIONS (3)
  - Gait disturbance [Unknown]
  - Asthenia [Unknown]
  - Depression [Unknown]
